FAERS Safety Report 19245082 (Version 1)
Quarter: 2021Q2

REPORT INFORMATION
  Report Type: Spontaneous
  Country: AU (occurrence: AU)
  Receive Date: 20210511
  Receipt Date: 20210511
  Transmission Date: 20210717
  Serious: Yes (Other)
  Sender: FDA-Public Use
  Company Number: AU-009507513-2105AUS000858

PATIENT

DRUGS (2)
  1. PEMBROLIZUMAB. [Suspect]
     Active Substance: PEMBROLIZUMAB
     Indication: DNA MISMATCH REPAIR PROTEIN GENE MUTATION
  2. PEMBROLIZUMAB. [Suspect]
     Active Substance: PEMBROLIZUMAB
     Indication: COLORECTAL CANCER METASTATIC
     Dosage: HAS HAD 4 CYCLES

REACTIONS (1)
  - Neutropenia [Not Recovered/Not Resolved]
